FAERS Safety Report 16789324 (Version 2)
Quarter: 2019Q4

REPORT INFORMATION
  Report Type: Spontaneous
  Country: US (occurrence: US)
  Receive Date: 20190910
  Receipt Date: 20191219
  Transmission Date: 20200122
  Serious: Yes (Hospitalization)
  Sender: FDA-Public Use
  Company Number: US-009507513-1909USA001742

PATIENT
  Sex: Female

DRUGS (3)
  1. KEYTRUDA [Suspect]
     Active Substance: PEMBROLIZUMAB
     Indication: PANCREATIC CARCINOMA
     Dosage: EVERY 3 WEEKS (Q3W),  RECEIVED 2 ROUNDS
     Route: 042
     Dates: start: 201902, end: 201903
  2. KEYTRUDA [Suspect]
     Active Substance: PEMBROLIZUMAB
     Indication: MICROSATELLITE INSTABILITY CANCER
  3. KEPPRA [Concomitant]
     Active Substance: LEVETIRACETAM
     Dosage: UNK

REACTIONS (3)
  - Gastrointestinal disorder [Not Recovered/Not Resolved]
  - Malnutrition [Not Recovered/Not Resolved]
  - Drug ineffective [Unknown]

NARRATIVE: CASE EVENT DATE: 2019
